FAERS Safety Report 9375261 (Version 2)
Quarter: 2013Q3

REPORT INFORMATION
  Report Type: Spontaneous
  Country: FR (occurrence: FR)
  Receive Date: 20130628
  Receipt Date: 20130702
  Transmission Date: 20140515
  Serious: Yes (Hospitalization)
  Sender: FDA-Public Use
  Company Number: FR-PFIZER INC-2013187170

PATIENT
  Age: 88 Year
  Sex: Female

DRUGS (8)
  1. EFFEXOR [Suspect]
     Dosage: 37.5 MG, 2X/DAY; ONCE EVERY MORNING AND EVENING
     Route: 048
  2. XARELTO [Suspect]
     Dosage: 15 MG, 1X/DAY
     Route: 048
     Dates: start: 2011, end: 20130523
  3. ALDACTONE [Concomitant]
     Dosage: 12.5 MG, 1X/DAY
     Route: 048
     Dates: end: 201305
  4. PERINDOPRIL [Concomitant]
     Dosage: 2 MG, 1X/DAY
     Route: 048
  5. HEMIGOXINE NATIVELLE [Concomitant]
     Dosage: 0.125 MG, 1X/DAY
     Route: 048
  6. SERETIDE [Concomitant]
     Dosage: 1 DF, 2X/DAY (EVERY MORNING AND EVENING)
     Route: 055
     Dates: end: 201305
  7. TEMESTA [Concomitant]
     Dosage: 1 DF, 1X/DAY
     Route: 048
  8. FOSFOMYCIN [Concomitant]
     Dosage: ONLY ON SUNDAYS

REACTIONS (4)
  - Traumatic haematoma [Recovered/Resolved]
  - Fall [Unknown]
  - Computerised tomogram abnormal [Unknown]
  - Pain [Unknown]
